FAERS Safety Report 19274671 (Version 11)
Quarter: 2023Q2

REPORT INFORMATION
  Report Type: Other
  Country: AT (occurrence: AT)
  Receive Date: 20210519
  Receipt Date: 20230630
  Transmission Date: 20230721
  Serious: Yes (Hospitalization)
  Sender: FDA-Public Use
  Company Number: AT-ROCHE-2828128

PATIENT
  Age: 47 Year
  Sex: Female
  Weight: 58 kg

DRUGS (54)
  1. PACLITAXEL [Suspect]
     Active Substance: PACLITAXEL
     Indication: HER2 positive breast cancer
     Route: 042
     Dates: start: 20190724, end: 20190912
  2. LAPATINIB [Suspect]
     Active Substance: LAPATINIB
     Indication: HER2 positive breast cancer
     Dosage: FREQUENCY: OTHER MOST RECENT DOSE PRIOR TO THE EVENT: 09/JAN/2021?0.2 DAYS
     Route: 048
     Dates: start: 20200923, end: 20211228
  3. LAPATINIB [Suspect]
     Active Substance: LAPATINIB
     Route: 048
     Dates: start: 20210109, end: 20211216
  4. ADO-TRASTUZUMAB EMTANSINE [Suspect]
     Active Substance: ADO-TRASTUZUMAB EMTANSINE
     Indication: HER2 positive breast cancer
     Route: 042
     Dates: start: 20191014, end: 20200518
  5. ADO-TRASTUZUMAB EMTANSINE [Suspect]
     Active Substance: ADO-TRASTUZUMAB EMTANSINE
     Route: 042
     Dates: start: 20200703, end: 20200703
  6. TRASTUZUMAB [Suspect]
     Active Substance: TRASTUZUMAB
     Indication: HER2 positive breast cancer
     Dosage: MOST RECENT DOSE PRIOR TO THE EVENT: 6/FEB/2023
     Route: 041
     Dates: start: 20190724, end: 20190912
  7. FAM-TRASTUZUMAB DERUXTECAN-NXKI [Suspect]
     Active Substance: FAM-TRASTUZUMAB DERUXTECAN-NXKI
     Indication: HER2 positive breast cancer
     Route: 042
     Dates: start: 20220110, end: 20220131
  8. FAM-TRASTUZUMAB DERUXTECAN-NXKI [Suspect]
     Active Substance: FAM-TRASTUZUMAB DERUXTECAN-NXKI
     Route: 042
     Dates: start: 20220324, end: 20220324
  9. FAM-TRASTUZUMAB DERUXTECAN-NXKI [Suspect]
     Active Substance: FAM-TRASTUZUMAB DERUXTECAN-NXKI
     Route: 042
     Dates: start: 20220419
  10. PERTUZUMAB [Suspect]
     Active Substance: PERTUZUMAB
     Indication: HER2 positive breast cancer
     Route: 042
     Dates: start: 20190724, end: 20190912
  11. CAPECITABINE [Suspect]
     Active Substance: CAPECITABINE
     Indication: HER2 positive breast cancer
     Dosage: FREQUENCY: OTHER SIX TIMES A DAY FOR 14 DAYS, 7 DAYS BREAK
     Route: 048
     Dates: start: 20200923, end: 20201220
  12. CAPECITABINE [Suspect]
     Active Substance: CAPECITABINE
     Dosage: 0.25 DAYS, MOST RECENT DOSE PRIOR TO THE EVENT: 2/JAN/2023
     Route: 048
     Dates: start: 20210109, end: 20211209
  13. HYDROMORPHONE HYDROCHLORIDE [Concomitant]
     Active Substance: HYDROMORPHONE HYDROCHLORIDE
     Dosage: ONGOING = CHECKED
     Dates: start: 20190716
  14. URSODIOL [Concomitant]
     Active Substance: URSODIOL
  15. CEOLAT [Concomitant]
     Indication: Product used for unknown indication
     Dosage: ONGOING = CHECKED
     Dates: start: 20190815
  16. CITALOPRAM [Concomitant]
     Active Substance: CITALOPRAM HYDROBROMIDE
     Indication: Product used for unknown indication
     Dosage: ONGOING = CHECKED
     Route: 048
     Dates: start: 20190715
  17. DRONABINOL [Concomitant]
     Active Substance: DRONABINOL
     Dosage: ONGOING = CHECKED
     Dates: start: 20190716
  18. DRONABINOL [Concomitant]
     Active Substance: DRONABINOL
     Dosage: ONGOING = CHECKED
     Dates: start: 20210705
  19. ALPRAZOLAM [Concomitant]
     Active Substance: ALPRAZOLAM
     Dosage: ONGOING = CHECKED
     Dates: start: 20190715
  20. LOVENOX [Concomitant]
     Active Substance: ENOXAPARIN SODIUM
     Indication: COVID-19
     Dosage: ONGOING = NOT CHECKED
     Dates: start: 20210302, end: 20210305
  21. TRAZODONE HYDROCHLORIDE [Concomitant]
     Active Substance: TRAZODONE HYDROCHLORIDE
     Dosage: ONGOING = CHECKED
     Route: 048
     Dates: start: 20190716, end: 20200926
  22. PANTOPRAZOLE SODIUM [Concomitant]
     Active Substance: PANTOPRAZOLE SODIUM
     Indication: COVID-19
     Dosage: ONGOING = NOT CHECKED
     Dates: start: 20210302, end: 20210303
  23. PANTOPRAZOLE SODIUM [Concomitant]
     Active Substance: PANTOPRAZOLE SODIUM
     Dosage: ONGOING = NOT CHECKED
     Dates: start: 20190701
  24. ACETAMINOPHEN [Concomitant]
     Active Substance: ACETAMINOPHEN
     Indication: Product used for unknown indication
     Dosage: ONGOING = CHECKED
     Dates: start: 20190701
  25. ZOFRAN [Concomitant]
     Active Substance: ONDANSETRON HYDROCHLORIDE
     Indication: COVID-19
     Dosage: ONGOING = NOT CHECKED
     Dates: start: 20210302, end: 20210302
  26. ZOFRAN [Concomitant]
     Active Substance: ONDANSETRON HYDROCHLORIDE
     Dosage: ONGOING = CHECKED
     Dates: start: 20190701
  27. ZOFRAN [Concomitant]
     Active Substance: ONDANSETRON HYDROCHLORIDE
     Dosage: ONGOING = CHECKED
     Dates: start: 20190704
  28. ZOFRAN [Concomitant]
     Active Substance: ONDANSETRON HYDROCHLORIDE
     Dosage: ONGOING = CHECKED
     Dates: start: 20220110
  29. SUCRALAN [Concomitant]
     Indication: Product used for unknown indication
     Dosage: ONGOING = CHECKED
     Route: 048
     Dates: start: 20190701
  30. DEXAMETHASONE [Concomitant]
     Active Substance: DEXAMETHASONE
     Indication: COVID-19
     Dosage: ONGOING = NOT CHECKED
     Dates: start: 20210302, end: 20210304
  31. DEXAMETHASONE [Concomitant]
     Active Substance: DEXAMETHASONE
     Indication: Intracranial pressure increased
     Dosage: ONGOING = CHECKED
     Dates: start: 20190704, end: 20190912
  32. DEXAMETHASONE [Concomitant]
     Active Substance: DEXAMETHASONE
     Dosage: ONGOING = CHECKED
     Dates: start: 20220110
  33. DEXAMETHASONE [Concomitant]
     Active Substance: DEXAMETHASONE
     Dosage: ONGOING = NOT CHECKED
     Dates: start: 20211229, end: 20220110
  34. DEXAMETHASONE [Concomitant]
     Active Substance: DEXAMETHASONE
     Dosage: ONGOING = CHECKED
     Dates: start: 20220111, end: 20220112
  35. DEXAMETHASONE [Concomitant]
     Active Substance: DEXAMETHASONE
     Dosage: ONGOING = CHECKED
     Dates: start: 20220113, end: 20220114
  36. DEXAMETHASONE [Concomitant]
     Active Substance: DEXAMETHASONE
     Dosage: ONGOING = CHECKED
     Dates: start: 20220115
  37. DEXAMETHASONE [Concomitant]
     Active Substance: DEXAMETHASONE
     Route: 048
     Dates: start: 20190705, end: 20190914
  38. DEXAMETHASONE [Concomitant]
     Active Substance: DEXAMETHASONE
     Route: 048
     Dates: start: 20220622
  39. ORNITHINE ASPARTATE [Concomitant]
     Active Substance: ORNITHINE ASPARTATE
  40. FERINJECT [Concomitant]
     Active Substance: FERRIC CARBOXYMALTOSE
     Indication: Iron deficiency anaemia
     Dosage: ONGOING = NOT CHECKED
     Dates: start: 20220114, end: 20220114
  41. OLANZAPINE [Concomitant]
     Active Substance: OLANZAPINE
     Dosage: ONGOING = CHECKED
     Dates: start: 20190904
  42. UNASYN [Concomitant]
     Active Substance: AMPICILLIN SODIUM\SULBACTAM SODIUM
  43. ASCORBIC ACID\CALCIUM PHOSPHATE\CHOLECALCIFEROL\CITRIC ACID MONOHYDRAT [Concomitant]
     Active Substance: ASCORBIC ACID\CALCIUM PHOSPHATE\CHOLECALCIFEROL\CITRIC ACID MONOHYDRATE
     Dosage: ONGOING = CHECKED
     Dates: start: 20190717
  44. NEULASTA [Concomitant]
     Active Substance: PEGFILGRASTIM
  45. EMEND [Concomitant]
     Active Substance: APREPITANT
     Route: 048
     Dates: start: 20220621
  46. EMEND [Concomitant]
     Active Substance: APREPITANT
     Route: 048
     Dates: start: 20220621
  47. LENDORM [Concomitant]
     Active Substance: BROTIZOLAM
     Indication: Insomnia
     Dosage: ONGOING = CHECKED
     Route: 048
     Dates: start: 20211229, end: 20211229
  48. POLYETHYLENE GLYCOL 4000 [Concomitant]
     Active Substance: POLYETHYLENE GLYCOL 4000
     Indication: Product used for unknown indication
     Dosage: ONGOING = CHECKED
     Dates: start: 20190705
  49. EUTHYROX [Concomitant]
     Active Substance: LEVOTHYROXINE SODIUM
     Dosage: ONGOING = CHECKED
     Route: 048
     Dates: start: 20190703, end: 20200929
  50. EUTHYROX [Concomitant]
     Active Substance: LEVOTHYROXINE SODIUM
     Route: 048
     Dates: end: 2019
  51. LOPERAMIDE HYDROCHLORIDE [Concomitant]
     Active Substance: LOPERAMIDE HYDROCHLORIDE
     Indication: Diarrhoea
     Dosage: ONGOING = CHECKED
     Dates: start: 20210215
  52. ACETAMINOPHEN [Concomitant]
     Active Substance: ACETAMINOPHEN
     Indication: COVID-19
     Dosage: ONGOING = NOT CHECKED
     Dates: start: 20210302, end: 20210303
  53. HYDROMORPHONE HYDROCHLORIDE [Concomitant]
     Active Substance: HYDROMORPHONE HYDROCHLORIDE
     Dosage: ONGOING = CHECKED
     Dates: start: 20220207
  54. HYDROMORPHONE HYDROCHLORIDE [Concomitant]
     Active Substance: HYDROMORPHONE HYDROCHLORIDE
     Dosage: ONGOING = CHECKED
     Dates: start: 20190716

REACTIONS (2)
  - COVID-19 [Recovered/Resolved]
  - COVID-19 [Recovered/Resolved]

NARRATIVE: CASE EVENT DATE: 20210222
